FAERS Safety Report 16165411 (Version 2)
Quarter: 2019Q2

REPORT INFORMATION
  Report Type: Spontaneous
  Country: CA (occurrence: CA)
  Receive Date: 20190405
  Receipt Date: 20190510
  Transmission Date: 20190711
  Serious: No
  Sender: FDA-Public Use
  Company Number: CA-ALLERGAN-1915109US

PATIENT
  Sex: Female

DRUGS (1)
  1. NO SUSPECT ALLERGAN PRODUCT [Suspect]
     Active Substance: UNSPECIFIED INGREDIENT

REACTIONS (1)
  - No adverse event [Unknown]
